FAERS Safety Report 4305027-6 (Version None)
Quarter: 2004Q1

REPORT INFORMATION
  Report Type: 
  Country: None (occurrence: None)
  Receive Date: 20040226
  Receipt Date: 19940510
  Transmission Date: 20041129
  Serious: Yes (Life-Threatening, Hospitalization, Disabling)
  Sender: FDA-Public Use
  Company Number: USA/94/00961/PLO

PATIENT
  Age: 33 Year
  Sex: Female

DRUGS (2)
  1. PARLODEL [Suspect]
     Indication: SUPPRESSED LACTATION
     Route: 048
     Dates: start: 19920310, end: 19920319
  2. NO CONCOMITANT MEDICATIONS WERE ADMINISTERED. [Concomitant]

REACTIONS (8)
  - APHASIA [None]
  - CEREBRAL HAEMORRHAGE [None]
  - CRANIOTOMY [None]
  - DYSPHAGIA [None]
  - ESSENTIAL HYPERTENSION [None]
  - HEADACHE [None]
  - HEMIPARESIS [None]
  - INTRACEREBRAL HAEMATOMA EVACUATION [None]
